FAERS Safety Report 7996087-X (Version None)
Quarter: 2011Q4

REPORT INFORMATION
  Report Type: 
  Country: None (occurrence: None)
  Receive Date: 20111220
  Receipt Date: 20111212
  Transmission Date: 20120403
  Serious: Yes (Other)
  Sender: FDA-Public Use
  Company Number: PHEH2011US011352

PATIENT
  Sex: Female

DRUGS (1)
  1. AREDIA [Suspect]
     Dosage: MONTHLY

REACTIONS (2)
  - PATHOLOGICAL FRACTURE [None]
  - MUSCULOSKELETAL PAIN [None]
